FAERS Safety Report 7998007-0 (Version None)
Quarter: 2011Q4

REPORT INFORMATION
  Report Type: 
  Country: None (occurrence: None)
  Receive Date: 20111221
  Receipt Date: 20101110
  Transmission Date: 20120403
  Serious: No
  Sender: FDA-Public Use
  Company Number: US-GLAXOSMITHKLINE-A0891831A

PATIENT
  Age: 73 Year
  Sex: Female

DRUGS (10)
  1. ASPIRIN [Concomitant]
  2. VITAMIN E [Concomitant]
  3. VITAMIN B-12 [Concomitant]
  4. ZOCOR [Concomitant]
  5. POTASSIUM [Concomitant]
  6. LOVAZA [Suspect]
     Indication: BLOOD TRIGLYCERIDES INCREASED
     Dosage: 2CAP TWICE PER DAY
     Route: 048
     Dates: start: 20100601
  7. VITAMIN D [Concomitant]
  8. CALCIUM [Concomitant]
  9. HYDROCHLOROTHIAZIDE [Concomitant]
  10. TOPROL-XL [Concomitant]

REACTIONS (6)
  - VERTIGO [None]
  - PRURITUS [None]
  - DIZZINESS [None]
  - THIRST [None]
  - RASH [None]
  - DRY MOUTH [None]
